FAERS Safety Report 6400141-3 (Version None)
Quarter: 2009Q4

REPORT INFORMATION
  Report Type: 
  Country: None (occurrence: None)
  Receive Date: 20091014
  Receipt Date: 20091005
  Transmission Date: 20100525
  Serious: Yes (Other)
  Sender: FDA-Public Use
  Company Number: US-PFIZER INC-2009202379

PATIENT
  Sex: Male
  Weight: 118 kg

DRUGS (5)
  1. LIPITOR [Suspect]
     Route: 048
  2. TIKOSYN [Suspect]
     Dosage: 500 UG, 2X/DAY
     Route: 048
     Dates: start: 20080101
  3. WARFARIN SODIUM [Concomitant]
  4. PLAVIX [Concomitant]
  5. LISINOPRIL [Concomitant]
     Indication: HYPERTENSION

REACTIONS (4)
  - ATRIAL FIBRILLATION [None]
  - DRUG INEFFECTIVE [None]
  - HIGH DENSITY LIPOPROTEIN DECREASED [None]
  - LOW DENSITY LIPOPROTEIN INCREASED [None]
